FAERS Safety Report 6713819-9 (Version None)
Quarter: 2010Q2

REPORT INFORMATION
  Report Type: 
  Country: None (occurrence: None)
  Receive Date: 20100506
  Receipt Date: 20100501
  Transmission Date: 20101027
  Serious: Yes (Other)
  Sender: FDA-Public Use
  Company Number: US-PFIZER INC-2010051846

PATIENT
  Sex: Male
  Weight: 80.726 kg

DRUGS (8)
  1. MARAVIROC [Suspect]
     Dosage: UNK
     Route: 048
     Dates: start: 20051222, end: 20070618
  2. DARUNAVIR [Concomitant]
     Dosage: UNK
     Route: 048
     Dates: start: 20080221
  3. RITONAVIR [Concomitant]
     Dosage: UNK
     Route: 048
     Dates: start: 20080221
  4. RALTEGRAVIR [Concomitant]
     Dosage: UNK
     Route: 048
     Dates: start: 20080221
  5. ETRAVIRINE [Concomitant]
     Dosage: UNK
     Route: 048
     Dates: start: 20080221
  6. TRUVADA [Concomitant]
     Dosage: UNK
     Route: 048
     Dates: start: 20080221
  7. ASPIRIN [Concomitant]
     Dosage: UNK
     Route: 048
     Dates: start: 20060421
  8. VITAMINS [Concomitant]
     Dosage: UNK
     Route: 048
     Dates: start: 20071015

REACTIONS (1)
  - HODGKIN'S DISEASE [None]
